FAERS Safety Report 6854100-7 (Version None)
Quarter: 2010Q3

REPORT INFORMATION
  Report Type: 
  Country: None (occurrence: None)
  Receive Date: 20100717
  Receipt Date: 20080205
  Transmission Date: 20110219
  Serious: No
  Sender: FDA-Public Use
  Company Number: US-PFIZER INC-2007107457

PATIENT
  Age: 29 Year
  Sex: Female
  Weight: 104.5 kg

DRUGS (7)
  1. CHANTIX [Suspect]
     Indication: SMOKING CESSATION THERAPY
     Dates: start: 20071122
  2. TOPAMAX [Concomitant]
  3. CRESTOR [Concomitant]
  4. TRICOR [Concomitant]
  5. MULTI-VITAMINS [Concomitant]
  6. VITAMIN C [Concomitant]
  7. CALCIUM [Concomitant]

REACTIONS (3)
  - EYELID DISORDER [None]
  - NAUSEA [None]
  - PAIN IN JAW [None]
